FAERS Safety Report 4832891-4 (Version None)
Quarter: 2005Q4

REPORT INFORMATION
  Report Type: 
  Country: None (occurrence: None)
  Receive Date: 20051121
  Receipt Date: 20051110
  Transmission Date: 20060501
  Serious: Yes (Life-Threatening, Hospitalization)
  Sender: FDA-Public Use
  Company Number: FR-GLAXOSMITHKLINE-B0400684A

PATIENT
  Age: 58 Year
  Sex: Male
  Weight: 88 kg

DRUGS (13)
  1. AUGMENTIN [Suspect]
     Indication: EAR PAIN
     Route: 048
     Dates: start: 20050916, end: 20051001
  2. TRAMADOL HCL [Suspect]
     Indication: EAR INFECTION
     Route: 048
     Dates: start: 20050916, end: 20051001
  3. ARTHROTEC [Suspect]
     Indication: EAR PAIN
     Route: 048
     Dates: start: 20050916, end: 20051001
  4. PROPOFOL [Concomitant]
  5. TAHOR [Concomitant]
  6. NOVONORM [Concomitant]
  7. GLUCOPHAGE [Concomitant]
  8. COZAAR [Concomitant]
  9. AMAREL [Concomitant]
  10. PARIET [Concomitant]
  11. AZANTAC [Concomitant]
  12. XATRAL [Concomitant]
  13. ANTIBIOTICS (UNSPECIFIED) [Concomitant]
     Route: 065
     Dates: start: 20051001

REACTIONS (7)
  - AGRANULOCYTOSIS [None]
  - ANAL ABSCESS [None]
  - BONE MARROW FAILURE [None]
  - FEBRILE INFECTION [None]
  - LUNG DISORDER [None]
  - PANCYTOPENIA [None]
  - PSEUDOMONAS INFECTION [None]
